FAERS Safety Report 15343464 (Version 5)
Quarter: 2020Q4

REPORT INFORMATION
  Report Type: Spontaneous
  Country: US (occurrence: US)
  Receive Date: 20180903
  Receipt Date: 20201027
  Transmission Date: 20210113
  Serious: No
  Sender: FDA-Public Use
  Company Number: US-PFIZER INC-2018348953

PATIENT
  Age: 61 Year
  Sex: Female
  Weight: 113 kg

DRUGS (3)
  1. LYRICA [Suspect]
     Active Substance: PREGABALIN
     Indication: NERVE INJURY
     Dosage: 200 MG, 2X/DAY
     Route: 048
  2. LYRICA [Suspect]
     Active Substance: PREGABALIN
     Indication: NEURALGIA
     Dosage: 200 MG, 3X/DAY
     Route: 048
  3. LYRICA [Suspect]
     Active Substance: PREGABALIN
     Indication: PAIN

REACTIONS (16)
  - Pain [Unknown]
  - Pyrexia [Unknown]
  - Tremor [Unknown]
  - Feeding disorder [Unknown]
  - Feeling abnormal [Unknown]
  - Hot flush [Unknown]
  - Vomiting [Unknown]
  - Retching [Unknown]
  - Product dose omission issue [Unknown]
  - Decreased appetite [Unknown]
  - Withdrawal syndrome [Unknown]
  - Feeling jittery [Unknown]
  - Blood pressure decreased [Unknown]
  - Nausea [Unknown]
  - Illness [Unknown]
  - Stress [Unknown]
